FAERS Safety Report 23833776 (Version 3)
Quarter: 2024Q3

REPORT INFORMATION
  Report Type: Report from Study
  Country: CA (occurrence: CA)
  Receive Date: 20240509
  Receipt Date: 20240710
  Transmission Date: 20241016
  Serious: Yes (Other)
  Sender: BOEHRINGER INGELHEIM
  Company Number: CA-BoehringerIngelheim-2024-BI-020844

PATIENT
  Age: 86 Year
  Sex: Female

DRUGS (1)
  1. OFEV [Suspect]
     Active Substance: NINTEDANIB
     Indication: Idiopathic pulmonary fibrosis
     Route: 048

REACTIONS (15)
  - Deafness [Not Recovered/Not Resolved]
  - Craniofacial fracture [Unknown]
  - Hypothyroidism [Recovering/Resolving]
  - Blood potassium decreased [Not Recovered/Not Resolved]
  - Fall [Recovering/Resolving]
  - COVID-19 [Recovered/Resolved]
  - Alopecia [Not Recovered/Not Resolved]
  - Oedema peripheral [Not Recovered/Not Resolved]
  - Nasopharyngitis [Recovering/Resolving]
  - Diarrhoea [Not Recovered/Not Resolved]
  - Nausea [Recovered/Resolved]
  - Flatulence [Not Recovered/Not Resolved]
  - Gastrooesophageal reflux disease [Not Recovered/Not Resolved]
  - Contusion [Unknown]
  - Pain [Unknown]
